FAERS Safety Report 10242223 (Version 1)
Quarter: 2014Q2

REPORT INFORMATION
  Report Type: Spontaneous
  Country: US (occurrence: None)
  Receive Date: 20140613
  Receipt Date: 20140613
  Transmission Date: 20141212
  Serious: Yes (Hospitalization)
  Sender: FDA-Public Use
  Company Number: UTC-047808

PATIENT
  Age: 9 Month
  Sex: Female
  Weight: 5.8 kg

DRUGS (7)
  1. REMODULIN [Suspect]
     Indication: COR PULMONALE CHRONIC
     Dosage: 0.07 UG/KG CONTINUING, SUBCUTANEOUS
     Route: 058
     Dates: start: 20131002
  2. ASPIRIN (ACETYLSALICYLIC ACID) [Suspect]
     Indication: PRODUCT USED FOR UNKNOWN INDICATION
  3. LASIX (FUROSEMIDE) [Suspect]
     Indication: PRODUCT USED FOR UNKNOWN INDICATION
  4. PREVACID (LANSOPRAZOLE) [Suspect]
     Indication: PRODUCT USED FOR UNKNOWN INDICATION
  5. POLY-VI-SOL (ASCORBIC ACID, ERGOCALCIFEROL, NICOTINAMIDE, RETINOL, RIBOFLAVIN, THIAMINE) [Suspect]
     Indication: PRODUCT USED FOR UNKNOWN INDICATION
  6. KCL [Suspect]
     Indication: PRODUCT USED FOR UNKNOWN INDICATION
  7. SILDENAFIL (SILDENAFIL) [Concomitant]

REACTIONS (6)
  - Cholelithiasis [None]
  - Hypoxia [None]
  - Feeding disorder [None]
  - Cholecystectomy [None]
  - Vomiting [None]
  - Nausea [None]
